FAERS Safety Report 9580130 (Version 1)
Quarter: 2013Q3

REPORT INFORMATION
  Report Type: Spontaneous
  Country: US (occurrence: None)
  Receive Date: 20130916
  Receipt Date: 20130916
  Transmission Date: 20140515
  Serious: Yes (Other)
  Sender: FDA-Public Use
  Company Number: JPI-P-030114

PATIENT
  Age: 46 Year
  Sex: Female
  Weight: 61.69 kg

DRUGS (7)
  1. XYREM [Suspect]
     Indication: CATAPLEXY
     Route: 048
     Dates: start: 20120717
  2. FLUTIASONE PROPIONATE W/SALETEROL [Concomitant]
  3. PRAVASTATIN [Concomitant]
  4. METOPROLOL [Concomitant]
  5. HYDROCODONE [Concomitant]
  6. GABAPENTIN [Concomitant]
  7. OXYGEN [Concomitant]

REACTIONS (3)
  - Weight decreased [None]
  - Nasal congestion [None]
  - Cough [None]
